FAERS Safety Report 5707588-9 (Version None)
Quarter: 2008Q2

REPORT INFORMATION
  Report Type: 
  Country: None (occurrence: None)
  Receive Date: 20080410
  Receipt Date: 20080204
  Transmission Date: 20081010
  Serious: Yes (Other)
  Sender: FDA-Public Use
  Company Number: WWISSUE-147

PATIENT
  Sex: Male

DRUGS (2)
  1. PRIMIDONE [Suspect]
  2. LISIONPRIL 5 MG TABLETS (IVAX) [Concomitant]

REACTIONS (1)
  - BLOOD PRESSURE INCREASED [None]
